FAERS Safety Report 15211190 (Version 1)
Quarter: 2018Q3

REPORT INFORMATION
  Report Type: Spontaneous
  Country: US (occurrence: US)
  Receive Date: 20180630
  Receipt Date: 20180630
  Transmission Date: 20181010
  Serious: Yes (Other)
  Sender: FDA-Public Use
  Company Number: None

PATIENT
  Age: 20 Year
  Sex: Male
  Weight: 54.9 kg

DRUGS (2)
  1. CELEBREX [Concomitant]
     Active Substance: CELECOXIB
  2. SIMPONI [Suspect]
     Active Substance: GOLIMUMAB
     Indication: JUVENILE IDIOPATHIC ARTHRITIS
     Dosage: ?          QUANTITY:1 INJECTION(S);?
     Route: 058

REACTIONS (6)
  - Diarrhoea [None]
  - Vomiting [None]
  - Abdominal pain [None]
  - Anaemia [None]
  - Abdominal distension [None]
  - Weight decreased [None]

NARRATIVE: CASE EVENT DATE: 20180108
